FAERS Safety Report 6595615-9 (Version None)
Quarter: 2010Q1

REPORT INFORMATION
  Report Type: 
  Country: None (occurrence: None)
  Receive Date: 20100222
  Receipt Date: 20100222
  Transmission Date: 20100710
  Serious: Yes (Life-Threatening, Hospitalization)
  Sender: FDA-Public Use
  Company Number: None

PATIENT
  Sex: Female
  Weight: 37.6486 kg

DRUGS (2)
  1. NEXIUM [Suspect]
     Indication: GASTROINTESTINAL DISORDER
     Dosage: NEXIUM 40MG 1 X A DAY
     Dates: start: 20091101, end: 20100101
  2. HYOMAX SR TABS 0.375 [Suspect]
     Indication: IRRITABLE BOWEL SYNDROME
     Dosage: HYOMAX 0.375 2 X A DAY
     Dates: start: 20091101, end: 20100101

REACTIONS (9)
  - ABDOMINAL PAIN UPPER [None]
  - FEAR [None]
  - HEADACHE [None]
  - MALAISE [None]
  - MYOCARDIAL INFARCTION [None]
  - NAUSEA [None]
  - PARANOIA [None]
  - VOMITING [None]
  - WEIGHT DECREASED [None]
